FAERS Safety Report 8812207 (Version 3)
Quarter: 2014Q3

REPORT INFORMATION
  Report Type: Report from Study
  Country: US (occurrence: US)
  Receive Date: 20120927
  Receipt Date: 20140902
  Transmission Date: 20150326
  Serious: Yes (Death, Other)
  Sender: FDA-Public Use
  Company Number: US-ROCHE-1126887

PATIENT
  Age: 70 Year
  Sex: Male
  Weight: 56 kg

DRUGS (4)
  1. GEMZAR [Concomitant]
     Active Substance: GEMCITABINE HYDROCHLORIDE
     Route: 065
     Dates: start: 20060308
  2. AVASTIN [Suspect]
     Active Substance: BEVACIZUMAB
     Indication: BREAST CANCER FEMALE
     Dosage: LABELED DOSING: 5MG/KG
     Route: 042
     Dates: start: 20060419, end: 20060816
  3. AVASTIN [Suspect]
     Active Substance: BEVACIZUMAB
     Indication: BREAST CANCER METASTATIC
  4. CARBOPLATIN. [Concomitant]
     Active Substance: CARBOPLATIN
     Route: 065
     Dates: start: 20060517

REACTIONS (5)
  - Death [Fatal]
  - Liver function test abnormal [Unknown]
  - Malaise [Unknown]
  - VIIth nerve paralysis [Unknown]
  - Off label use [Unknown]

NARRATIVE: CASE EVENT DATE: 20060628
